FAERS Safety Report 12704835 (Version 1)
Quarter: 2016Q3

REPORT INFORMATION
  Report Type: Spontaneous
  Country: US (occurrence: US)
  Receive Date: 20160831
  Receipt Date: 20160831
  Transmission Date: 20161109
  Serious: No
  Sender: FDA-Public Use
  Company Number: US-ASTRAZENECA-2016SE91985

PATIENT
  Sex: Female

DRUGS (1)
  1. TOPROL XL [Suspect]
     Active Substance: METOPROLOL SUCCINATE
     Dosage: 180.0MG UNKNOWN
     Route: 048

REACTIONS (2)
  - Urticaria [Unknown]
  - Angioedema [Unknown]
